FAERS Safety Report 6616989-6 (Version None)
Quarter: 2010Q1

REPORT INFORMATION
  Report Type: 
  Country: None (occurrence: None)
  Receive Date: 20100301
  Receipt Date: 20100215
  Transmission Date: 20100710
  Serious: Yes (Death, Life-Threatening)
  Sender: FDA-Public Use
  Company Number: 2009JP004779

PATIENT
  Age: 62 Year
  Sex: Female
  Weight: 37 kg

DRUGS (39)
  1. TACROLIMUS [Suspect]
     Indication: LIVER TRANSPLANT
     Dosage: SEE IMAGE
     Route: 048
     Dates: start: 20090711, end: 20090713
  2. TACROLIMUS [Suspect]
     Indication: LIVER TRANSPLANT
     Dosage: SEE IMAGE
     Route: 048
     Dates: start: 20090714, end: 20090714
  3. TACROLIMUS [Suspect]
     Indication: LIVER TRANSPLANT
     Dosage: SEE IMAGE
     Route: 048
     Dates: start: 20090715, end: 20090715
  4. TACROLIMUS [Suspect]
     Indication: LIVER TRANSPLANT
     Dosage: SEE IMAGE
     Route: 048
     Dates: start: 20090716, end: 20090716
  5. TACROLIMUS [Suspect]
     Indication: LIVER TRANSPLANT
     Dosage: SEE IMAGE
     Route: 048
     Dates: start: 20090729, end: 20090816
  6. PROGRAF [Suspect]
     Indication: LIVER TRANSPLANT
     Dosage: 1 G, BID, ORAL
     Route: 048
     Dates: start: 20090709, end: 20090710
  7. CELLCEPT [Suspect]
     Indication: LIVER TRANSPLANT
     Dosage: 250 MG, UID/QD, ORAL; 250 MG, BID, ORAL; 350 MG, BID, ORAL
     Route: 048
     Dates: start: 20090718, end: 20090718
  8. CELLCEPT [Suspect]
     Indication: LIVER TRANSPLANT
     Dosage: 250 MG, UID/QD, ORAL; 250 MG, BID, ORAL; 350 MG, BID, ORAL
     Route: 048
     Dates: start: 20090719, end: 20090720
  9. CELLCEPT [Suspect]
     Indication: LIVER TRANSPLANT
     Dosage: 250 MG, UID/QD, ORAL; 250 MG, BID, ORAL; 350 MG, BID, ORAL
     Route: 048
     Dates: start: 20090721, end: 20090728
  10. CELLCEPT [Suspect]
     Indication: LIVER TRANSPLANT
     Dosage: 250 MG, UID/QD, ORAL; 250 MG, BID, ORAL; 350 MG, BID, ORAL
     Route: 048
     Dates: start: 20090729, end: 20090801
  11. PREDNISOLONE [Concomitant]
  12. LASIX (FUROSEMIDE) INJECTION [Concomitant]
  13. FUNGUARD (MICAFUNGIN) INJECTION [Concomitant]
  14. KAYTWO (MENATETRENONE) INJECTION [Concomitant]
  15. DALACIN-S (CLINDAMYCIN) INJECTION [Concomitant]
  16. GLOVENIN (IMMUNOGLOBULIN HUMAN NORMAL) INJECTION [Concomitant]
  17. TIENAM (IMIPENEM, CILASTATIN SODIUM) INJECTION [Concomitant]
  18. VALTREX [Concomitant]
  19. FAMOTIDINE (FAMOTIDINE) TABLET [Concomitant]
  20. BARACLUDE (ENTECAVIR) TABLET [Concomitant]
  21. DAIKENTYUTO (HERBAL EXTRACT NOS) GRANULE [Concomitant]
  22. URSO (URSODEOXYCHOLIC ACID, RIBOFLAVIN) TABLET [Concomitant]
  23. UNASYN (SULTAMICILLIN) INJECTION [Concomitant]
  24. CIPROXAN (CIPROFLOXACIN HYDROCHLORIDE) INJECTION [Concomitant]
  25. ANTIBIOTICS FORMULATION UNKNOWN [Concomitant]
  26. GAMMA GLOBULIN (IMMUNOGLOBULIN) [Concomitant]
  27. VICCILLIN (AMPICILLIN TRIHYDRATE) INJECTION [Concomitant]
  28. CLAFORAN (LIDOCAINE HYDROCHLORIDE) INJECTION [Concomitant]
  29. NEUART (ANTITHROMBIN III) INJECTION [Concomitant]
  30. HEBSBULIN (IMMUNOGLOBULIN ANTIHEPATITIS B) INJECTION [Concomitant]
  31. COAHIBITOR (NAFAMOSTAT MESILATE) INJECTION [Concomitant]
  32. PROSTANDIN (ALPROSTADIL ALFADEX) INJECTION [Concomitant]
  33. BAKTAR (SULFAMETHOXAZOLE, TRIMETHOPRIM) TABLET [Concomitant]
  34. MIRACLID (ULINASTATIN) INJECTION [Concomitant]
  35. SOLU-MEDROL [Concomitant]
  36. GASTER (FAMOTIDINE) INJECTION [Concomitant]
  37. OMEPRAL (OMEPRAZOLE SODIUM) INJECTION [Concomitant]
  38. MEROPEN (MEROPENEM TRIHYDRATE) INJECTION [Concomitant]
  39. VENOGLOBULIN [Concomitant]

REACTIONS (20)
  - ACIDOSIS [None]
  - ACINETOBACTER INFECTION [None]
  - BACTERIAL INFECTION [None]
  - BLOOD CULTURE POSITIVE [None]
  - BLOOD PRESSURE DECREASED [None]
  - CARDIOVASCULAR DISORDER [None]
  - CONDITION AGGRAVATED [None]
  - CYTOMEGALOVIRUS VIRAEMIA [None]
  - ENTEROCOCCAL INFECTION [None]
  - GENERAL PHYSICAL HEALTH DETERIORATION [None]
  - HEPATIC FAILURE [None]
  - HISTIOCYTOSIS HAEMATOPHAGIC [None]
  - HYPERTHERMIA [None]
  - LIVER TRANSPLANT REJECTION [None]
  - MULTI-ORGAN FAILURE [None]
  - PLATELET COUNT DECREASED [None]
  - PROTHROMBIN LEVEL DECREASED [None]
  - RENAL IMPAIRMENT [None]
  - RESPIRATORY DISTRESS [None]
  - SEPSIS [None]
